FAERS Safety Report 18347209 (Version 6)
Quarter: 2020Q4

REPORT INFORMATION
  Report Type: Spontaneous
  Country: DE (occurrence: DE)
  Receive Date: 20201005
  Receipt Date: 20201124
  Transmission Date: 20210114
  Serious: Yes (Hospitalization)
  Sender: FDA-Public Use
  Company Number: DE-ROCHE-2688359

PATIENT
  Age: 57 Year
  Sex: Female
  Weight: 50 kg

DRUGS (8)
  1. BEOVU [Suspect]
     Active Substance: BROLUCIZUMAB-DBLL
     Dosage: (LEFT EYE)?DATE OF MOST RECENT DOSE RECEIVED PRIOR TO EVENT ONSET: 28/APR/2020
     Route: 031
     Dates: start: 20200428, end: 20200428
  2. LUCENTIS [Suspect]
     Active Substance: RANIBIZUMAB
     Indication: PRODUCT USED FOR UNKNOWN INDICATION
     Dosage: (BOTH EYES)
     Route: 031
  3. AFLIBERCEPT [Suspect]
     Active Substance: AFLIBERCEPT
     Indication: PRODUCT USED FOR UNKNOWN INDICATION
     Dosage: (BOTH EYES)
     Route: 031
  4. BEOVU [Suspect]
     Active Substance: BROLUCIZUMAB-DBLL
     Indication: NEOVASCULAR AGE-RELATED MACULAR DEGENERATION
     Dosage: (RIGHT EYE)
     Route: 031
     Dates: start: 20200421, end: 20200421
  5. SIMBRINZA [Concomitant]
     Active Substance: BRIMONIDINE TARTRATE\BRINZOLAMIDE
     Indication: PRODUCT USED FOR UNKNOWN INDICATION
     Dosage: QN (1X AT NIGHT)
     Route: 065
     Dates: start: 20161109
  6. AVASTIN [Suspect]
     Active Substance: BEVACIZUMAB
     Indication: PRODUCT USED FOR UNKNOWN INDICATION
     Dosage: (BOTH EYES)
     Route: 031
  7. EYLEA [Suspect]
     Active Substance: AFLIBERCEPT
     Indication: PRODUCT USED FOR UNKNOWN INDICATION
     Dosage: (BOTH EYES)
     Route: 031
  8. LUMIGAN [Concomitant]
     Active Substance: BIMATOPROST
     Indication: PRODUCT USED FOR UNKNOWN INDICATION
     Dosage: UNK UNK, BID
     Route: 065
     Dates: start: 20161109

REACTIONS (2)
  - Uveitis [Recovered/Resolved]
  - Iritis [Recovered/Resolved]

NARRATIVE: CASE EVENT DATE: 20200504
